FAERS Safety Report 8761634 (Version 1)
Quarter: 2012Q4

REPORT INFORMATION
  Report Type: Spontaneous
  Country: US (occurrence: None)
  Receive Date: 20120830
  Receipt Date: 20120830
  Transmission Date: 20130627
  Serious: Yes (Death)
  Sender: FDA-Public Use
  Company Number: None

PATIENT
  Sex: Female

DRUGS (3)
  1. DEPAKOTE ER [Suspect]
     Indication: SCHIZOAFFECTIVE DISORDER
     Route: 048
     Dates: start: 20100329
  2. RISPERDAL [Concomitant]
  3. MELATONIN [Concomitant]

REACTIONS (4)
  - Dizziness [None]
  - Fall [None]
  - Drug ineffective [None]
  - Therapeutic response unexpected with drug substitution [None]
